FAERS Safety Report 9715686 (Version 2)
Quarter: 2013Q4

REPORT INFORMATION
  Report Type: Spontaneous
  Country: AU (occurrence: AU)
  Receive Date: 20131127
  Receipt Date: 20131127
  Transmission Date: 20140711
  Serious: Yes (Hospitalization)
  Sender: FDA-Public Use
  Company Number: AU-ROCHE-GNE220992

PATIENT
  Age: 0 Day
  Sex: Male
  Weight: 2.36 kg

DRUGS (5)
  1. MABTHERA [Suspect]
     Indication: NON-HODGKIN^S LYMPHOMA
     Dosage: 375 MG/M2, Q2W
     Route: 064
  2. CYCLOPHOSPHAMIDE [Suspect]
     Indication: NON-HODGKIN^S LYMPHOMA
     Dosage: 750 MG, Q2W
     Route: 064
  3. DOXORUBICIN HYDROCHLORIDE [Suspect]
     Indication: NON-HODGKIN^S LYMPHOMA
     Dosage: 50 MG/M2, Q2W
     Route: 064
  4. VINCRISTINE SULPHATE [Suspect]
     Indication: NON-HODGKIN^S LYMPHOMA
     Dosage: 1.4 MG/M2, Q2W
     Route: 064
  5. PREDNISOLONE [Concomitant]
     Indication: NON-HODGKIN^S LYMPHOMA
     Dosage: 100 MG/M2, Q2W
     Route: 064

REACTIONS (2)
  - Foetal growth restriction [Not Recovered/Not Resolved]
  - Bronchiolitis [Not Recovered/Not Resolved]
